FAERS Safety Report 8988997 (Version 1)
Quarter: 2012Q4

REPORT INFORMATION
  Report Type: 
  Country: US (occurrence: US)
  Receive Date: 20121228
  Receipt Date: 20121228
  Transmission Date: 20130627
  Serious: Yes (Other)
  Sender: FDA-Public Use
  Company Number: US-ELI_LILLY_AND_COMPANY-US201212006353

PATIENT
  Sex: Male

DRUGS (12)
  1. CYMBALTA [Suspect]
     Indication: DEPRESSION
     Dosage: 60 mg, unknown
  2. PROZAC [Suspect]
     Dosage: UNK
     Dates: start: 1990, end: 2003
  3. TRAMADOL [Concomitant]
     Indication: BACK PAIN
  4. AMBIEN [Concomitant]
  5. VYVANSE [Concomitant]
     Dosage: 20 mg, unknown
     Dates: start: 20121219
  6. IMIPRAMINE [Concomitant]
  7. VALSARTAN W/HIDROCLOROTIAZIDA [Concomitant]
  8. ABILIFY [Concomitant]
     Dosage: 10 mg, unknown
  9. ABILIFY [Concomitant]
     Dosage: 2 mg, unknown
  10. ABILIFY [Concomitant]
     Dosage: 5 mg, unknown
  11. VALIUM [Concomitant]
  12. PERCOCET [Concomitant]
     Indication: BACK PAIN

REACTIONS (14)
  - Homicidal ideation [Recovered/Resolved]
  - Suicide attempt [Unknown]
  - Suicidal ideation [Recovered/Resolved]
  - Abnormal behaviour [Unknown]
  - Compulsive hoarding [Unknown]
  - Back disorder [Unknown]
  - Pain [Unknown]
  - Pain threshold decreased [Unknown]
  - Obsessive thoughts [Unknown]
  - Decreased activity [Unknown]
  - Drug ineffective [Unknown]
  - Hypersomnia [Unknown]
  - Urinary retention [Unknown]
  - Drug abuse [Unknown]
